FAERS Safety Report 9386606 (Version 1)
Quarter: 2013Q3

REPORT INFORMATION
  Report Type: Spontaneous
  Country: FR (occurrence: FR)
  Receive Date: 20130708
  Receipt Date: 20130708
  Transmission Date: 20140515
  Serious: Yes (Life-Threatening, Hospitalization)
  Sender: FDA-Public Use
  Company Number: FR-BRISTOL-MYERS SQUIBB COMPANY-19054345

PATIENT
  Age: 26 Year
  Sex: Female

DRUGS (6)
  1. ABILIFY TABS 15 MG [Suspect]
     Dosage: 7TABS
     Route: 048
  2. DEPAMIDE [Suspect]
     Dosage: 5TABS
     Dates: start: 20130123
  3. PROZAC [Suspect]
     Dosage: 28TABS
     Dates: start: 20130123
  4. ATARAX [Suspect]
     Dates: start: 20130123
  5. LYSANXIA [Suspect]
     Dosage: 1DF: 20TABS
     Dates: start: 20130123
  6. ALCOHOL [Suspect]
     Dates: start: 20130123

REACTIONS (2)
  - Coma [Recovered/Resolved]
  - Intentional overdose [Unknown]
